FAERS Safety Report 16636095 (Version 2)
Quarter: 2019Q3

REPORT INFORMATION
  Report Type: Spontaneous
  Country: US (occurrence: US)
  Receive Date: 20190726
  Receipt Date: 20190930
  Transmission Date: 20191004
  Serious: No
  Sender: FDA-Public Use
  Company Number: US-PFIZER INC-2019316131

PATIENT
  Age: 55 Year
  Sex: Female

DRUGS (1)
  1. METHOTREXATE SODIUM. [Suspect]
     Active Substance: METHOTREXATE SODIUM
     Dosage: UNK
     Dates: start: 2017

REACTIONS (6)
  - Inflammation [Unknown]
  - Dizziness [Unknown]
  - Folliculitis [Unknown]
  - Feeling abnormal [Recovered/Resolved]
  - Pain in extremity [Unknown]
  - Musculoskeletal stiffness [Unknown]
